FAERS Safety Report 5642955-3 (Version None)
Quarter: 2008Q1

REPORT INFORMATION
  Report Type: 
  Country: None (occurrence: None)
  Receive Date: 20080228
  Receipt Date: 20080219
  Transmission Date: 20080703
  Serious: Yes (Other)
  Sender: FDA-Public Use
  Company Number: US-SOLVAY-00207000177

PATIENT
  Age: 683 Month
  Sex: Male
  Weight: 84 kg

DRUGS (2)
  1. MARINOL [Suspect]
     Indication: BACK PAIN
     Dosage: DAILY DOSE: 1-4 CAPSULES
     Route: 048
     Dates: start: 20060901
  2. ALEVE [Concomitant]
     Indication: BACK PAIN
     Dosage: DAILY DOSE:  UNKNOWN
     Route: 048

REACTIONS (2)
  - BLADDER CANCER [None]
  - URINARY BLADDER HAEMORRHAGE [None]
